FAERS Safety Report 13189540 (Version 2)
Quarter: 2017Q1

REPORT INFORMATION
  Report Type: Spontaneous
  Country: ES (occurrence: ES)
  Receive Date: 20170206
  Receipt Date: 20170301
  Transmission Date: 20170428
  Serious: Yes (Hospitalization, Other)
  Sender: FDA-Public Use
  Company Number: ES-SHIRE-ES201702040

PATIENT
  Age: 35 Year
  Sex: Male

DRUGS (2)
  1. ELVANSE [Suspect]
     Active Substance: LISDEXAMFETAMINE DIMESYLATE
     Indication: ATTENTION DEFICIT/HYPERACTIVITY DISORDER
     Dosage: 30 MG, 1X/DAY:QD(ONE MORNINGS)
     Route: 048
  2. OMEPRAZOLE. [Concomitant]
     Active Substance: OMEPRAZOLE
     Indication: PRODUCT USED FOR UNKNOWN INDICATION
     Dosage: 20 MG, 1X/DAY:QD(ONE EVENINGS)

REACTIONS (8)
  - Syncope [Unknown]
  - Postural orthostatic tachycardia syndrome [Unknown]
  - Dizziness [Unknown]
  - Angina pectoris [Unknown]
  - Palpitations [Unknown]
  - Hypertensive crisis [Unknown]
  - Muscle fatigue [Unknown]
  - Secondary hypertension [Unknown]

NARRATIVE: CASE EVENT DATE: 20170111
